FAERS Safety Report 8214439-X (Version None)
Quarter: 2012Q1

REPORT INFORMATION
  Report Type: 
  Country: None (occurrence: None)
  Receive Date: 20120316
  Receipt Date: 20120306
  Transmission Date: 20120608
  Serious: Yes (Other)
  Sender: FDA-Public Use
  Company Number: JP-JNJFOC-20120304604

PATIENT

DRUGS (1)
  1. INFLIXIMAB, RECOMBINANT [Suspect]
     Indication: CROHN'S DISEASE
     Route: 042
     Dates: start: 20000101, end: 20110401

REACTIONS (3)
  - THERAPEUTIC RESPONSE DECREASED [None]
  - ABSCESS [None]
  - ANORECTAL DISORDER [None]
